FAERS Safety Report 22158819 (Version 1)
Quarter: 2023Q1

REPORT INFORMATION
  Report Type: Report from Study
  Country: US (occurrence: US)
  Receive Date: 20230331
  Receipt Date: 20230331
  Transmission Date: 20230417
  Serious: Yes (Other)
  Sender: FDA-Public Use
  Company Number: US-SUN PHARMACEUTICAL INDUSTRIES LTD-2022R1-334522

PATIENT
  Age: 79 Year
  Sex: Female
  Weight: 105 kg

DRUGS (8)
  1. PLACEBO [Suspect]
     Active Substance: UNSPECIFIED INGREDIENT
     Indication: Psoriatic arthropathy
     Dosage: 100 MILLIGRAM/ Q12 WEEK
     Route: 058
     Dates: start: 20210317, end: 20210420
  2. TILDRAKIZUMAB [Suspect]
     Active Substance: TILDRAKIZUMAB
     Indication: Psoriatic arthropathy
     Dosage: 100 MILLIGRAM/ Q12 WEEK
     Route: 058
     Dates: start: 20210317, end: 20210420
  3. ADVIL [Concomitant]
     Active Substance: IBUPROFEN
     Indication: Psoriatic arthropathy
     Dosage: 400 MILLIGRAM, QD
     Route: 048
     Dates: start: 2018
  4. ADVIL [Concomitant]
     Active Substance: IBUPROFEN
     Indication: Pain
  5. ATENOLOL [Concomitant]
     Active Substance: ATENOLOL
     Indication: Hypertension
     Dosage: 25 MILLIGRAM, QD
     Route: 048
     Dates: start: 2011
  6. DETTOL FIRST AID ANTISEPTIC [Concomitant]
     Active Substance: CHLOROXYLENOL
     Indication: Psoriasis
     Dosage: 1 APPLICATION, QD/ DERMAL
     Route: 065
     Dates: start: 202012
  7. FUROSEMIDE [Concomitant]
     Active Substance: FUROSEMIDE
     Indication: Hypertension
     Dosage: 40 MILLIGRAM, QD
     Route: 048
     Dates: start: 2011
  8. INSULIN NOS [Concomitant]
     Active Substance: INSULIN NOS
     Indication: Diabetes mellitus
     Dosage: 30 UNIT, QD
     Route: 058
     Dates: start: 2012

REACTIONS (1)
  - Endometrial adenocarcinoma [Not Recovered/Not Resolved]

NARRATIVE: CASE EVENT DATE: 20220404
